FAERS Safety Report 8517815-0 (Version None)
Quarter: 2012Q3

REPORT INFORMATION
  Report Type: 
  Country: None (occurrence: None)
  Receive Date: 20120712
  Receipt Date: 20120712
  Transmission Date: 20120928
  Serious: Yes (Hospitalization)
  Sender: FDA-Public Use
  Company Number: None

PATIENT
  Sex: Male
  Weight: 89.72 kg

DRUGS (1)
  1. VANCOMYCIN [Suspect]
     Indication: OSTEOMYELITIS
     Dosage: 1.75 GRAMS EVERY 12 HOURS IV
     Route: 042
     Dates: start: 20120522, end: 20120613

REACTIONS (4)
  - WHITE BLOOD CELL COUNT DECREASED [None]
  - HEADACHE [None]
  - DIARRHOEA [None]
  - RASH [None]
